FAERS Safety Report 7991258-0 (Version None)
Quarter: 2011Q4

REPORT INFORMATION
  Report Type: 
  Country: None (occurrence: None)
  Receive Date: 20111215
  Receipt Date: 20111205
  Transmission Date: 20120403
  Serious: No
  Sender: FDA-Public Use
  Company Number: TPG2011A03203

PATIENT
  Sex: Male

DRUGS (1)
  1. ACTOS [Suspect]
     Route: 048

REACTIONS (1)
  - BLADDER CANCER [None]
